FAERS Safety Report 15489057 (Version 1)
Quarter: 2018Q4

REPORT INFORMATION
  Report Type: Spontaneous
  Country: US (occurrence: US)
  Receive Date: 20181004
  Receipt Date: 20181004
  Transmission Date: 20190205
  Serious: Yes (Life-Threatening)
  Sender: FDA-Public Use
  Company Number: None

PATIENT
  Age: 81 Year
  Sex: Male
  Weight: 85.5 kg

DRUGS (1)
  1. TAMSULOSIN [Suspect]
     Active Substance: TAMSULOSIN
     Indication: BENIGN PROSTATIC HYPERPLASIA
     Route: 048
     Dates: start: 20180725, end: 20181004

REACTIONS (5)
  - Product substitution issue [None]
  - Dizziness [None]
  - Loss of consciousness [None]
  - Musculoskeletal stiffness [None]
  - Fall [None]

NARRATIVE: CASE EVENT DATE: 20180914
